FAERS Safety Report 20682722 (Version 1)
Quarter: 2022Q2

REPORT INFORMATION
  Report Type: Report from Study
  Country: US (occurrence: US)
  Receive Date: 20220407
  Receipt Date: 20220407
  Transmission Date: 20220721
  Serious: Yes (Hospitalization, Other)
  Sender: FDA-Public Use
  Company Number: US-ABBVIE-22K-163-4231351-00

PATIENT
  Age: 77 Year
  Sex: Female
  Weight: 77.180 kg

DRUGS (9)
  1. HUMIRA [Suspect]
     Active Substance: ADALIMUMAB
     Indication: Colitis ulcerative
     Dosage: CITRATE FREE
     Route: 058
     Dates: start: 20200508
  2. HUMIRA [Suspect]
     Active Substance: ADALIMUMAB
     Indication: Crohn^s disease
  3. PFIZER-BIONTECH COVID-19 VACCINE [Concomitant]
     Active Substance: TOZINAMERAN
     Indication: COVID-19 immunisation
     Dosage: PFIZER/BIONTECH
     Route: 030
     Dates: start: 202102, end: 202102
  4. PFIZER-BIONTECH COVID-19 VACCINE [Concomitant]
     Active Substance: TOZINAMERAN
     Dosage: PFIZER/BIONTECH
     Route: 030
     Dates: start: 202103, end: 202103
  5. PFIZER-BIONTECH COVID-19 VACCINE [Concomitant]
     Active Substance: TOZINAMERAN
     Dosage: PFIZER/BIONTECH
     Route: 030
     Dates: start: 202104, end: 202104
  6. BALSALAZIDE [Concomitant]
     Active Substance: BALSALAZIDE
     Indication: Colitis ulcerative
     Route: 048
     Dates: start: 2020, end: 20211214
  7. BALSALAZIDE [Concomitant]
     Active Substance: BALSALAZIDE
     Route: 048
     Dates: start: 202112
  8. PROBIOTICS NOS [Concomitant]
     Active Substance: PROBIOTICS NOS
     Indication: Colitis ulcerative
     Route: 048
     Dates: start: 2020, end: 20211214
  9. PROBIOTICS NOS [Concomitant]
     Active Substance: PROBIOTICS NOS
     Route: 048
     Dates: start: 202112

REACTIONS (25)
  - Staring [Unknown]
  - Speech disorder [Unknown]
  - Colitis [Recovering/Resolving]
  - Spinal operation [Recovered/Resolved]
  - Carotid arteriosclerosis [Unknown]
  - Paranasal cyst [Unknown]
  - Sinus polyp [Unknown]
  - Paranasal sinus mucosal hypertrophy [Unknown]
  - Vertebral foraminal stenosis [Unknown]
  - Spinal flattening [Unknown]
  - Spinal osteoarthritis [Unknown]
  - Dental cyst [Unknown]
  - Hepatic lesion [Unknown]
  - Renal cyst [Unknown]
  - Diverticulum intestinal [Unknown]
  - Post procedural complication [Unknown]
  - Mobility decreased [Unknown]
  - Insomnia [Unknown]
  - Poor quality sleep [Unknown]
  - Poor quality sleep [Unknown]
  - Fall [Recovered/Resolved]
  - Abdominal pain lower [Unknown]
  - Back pain [Unknown]
  - Tooth abscess [Unknown]
  - Colitis ulcerative [Recovering/Resolving]

NARRATIVE: CASE EVENT DATE: 20211201
